FAERS Safety Report 6576351-1 (Version None)
Quarter: 2010Q1

REPORT INFORMATION
  Report Type: 
  Country: None (occurrence: None)
  Receive Date: 20100210
  Receipt Date: 20091027
  Transmission Date: 20100710
  Serious: No
  Sender: FDA-Public Use
  Company Number: A0829321A

PATIENT
  Age: 63 Year
  Sex: Female
  Weight: 64 kg

DRUGS (2)
  1. OLUX E [Suspect]
     Dosage: 0PCT TWICE PER DAY
     Route: 061
     Dates: start: 20090701, end: 20090801
  2. OLUX E [Suspect]
     Dosage: 0PCT TWICE PER DAY
     Route: 061
     Dates: start: 20091024

REACTIONS (2)
  - APPLICATION SITE PAIN [None]
  - OFF LABEL USE [None]
